FAERS Safety Report 6802194-7 (Version None)
Quarter: 2010Q2

REPORT INFORMATION
  Report Type: 
  Country: None (occurrence: None)
  Receive Date: 20100629
  Receipt Date: 20080314
  Transmission Date: 20101027
  Serious: Yes (Other)
  Sender: FDA-Public Use
  Company Number: US-PFIZER INC-2006029588

PATIENT
  Sex: Female

DRUGS (4)
  1. BEXTRA [Suspect]
     Indication: PAIN IN EXTREMITY
     Dates: start: 20020903
  2. BEXTRA [Suspect]
     Indication: HYPOAESTHESIA
  3. BEXTRA [Suspect]
     Indication: PARAESTHESIA
  4. BEXTRA [Suspect]
     Indication: CARPAL TUNNEL SYNDROME

REACTIONS (1)
  - STEVENS-JOHNSON SYNDROME [None]
